FAERS Safety Report 6597170-6 (Version None)
Quarter: 2010Q1

REPORT INFORMATION
  Report Type: 
  Country: None (occurrence: None)
  Receive Date: 20100223
  Receipt Date: 20100219
  Transmission Date: 20100710
  Serious: Yes (Other)
  Sender: FDA-Public Use
  Company Number: US-RB-002639-10

PATIENT
  Sex: Female

DRUGS (8)
  1. SUBOXONE [Suspect]
     Route: 060
     Dates: start: 20070101, end: 20100205
  2. ANTIHYPERTENSIVE [Concomitant]
     Indication: HYPERTENSION
     Dosage: UNKNOWN DOSING DETAILS
     Route: 065
     Dates: end: 20100201
  3. LIDOCAINE PATCHES [Concomitant]
     Indication: BACK PAIN
     Dosage: UNKNOWN DOSING DETAILS
     Route: 062
  4. ANTIDEPRESSANT [Concomitant]
     Indication: DEPRESSION
     Dosage: UNKNOWN DOSING DETAILS
     Route: 065
     Dates: start: 20100101
  5. ANTIDEPRESSANT [Concomitant]
     Indication: ANXIETY
     Dosage: UNKNOWN DOSING DETAILS
     Route: 065
     Dates: start: 20100101
  6. KLONOPIN [Suspect]
     Dosage: UNKNOWN DOSING DETAILS
     Route: 065
     Dates: end: 20100206
  7. KLONOPIN [Suspect]
     Dosage: UNKNOWN DOSING DETAILS
     Route: 065
     Dates: start: 20100215
  8. HERBAL DIET SUPPLETMENT [Concomitant]
     Indication: DRUG USE FOR UNKNOWN INDICATION
     Dosage: UNKNOWN DOSING DETAILS
     Route: 065
     Dates: start: 20070101

REACTIONS (12)
  - ANXIETY [None]
  - BLOOD PRESSURE FLUCTUATION [None]
  - CONTUSION [None]
  - CONVULSION [None]
  - DEHYDRATION [None]
  - DRUG WITHDRAWAL SYNDROME [None]
  - FALL [None]
  - INSOMNIA [None]
  - PAIN [None]
  - RASH PAPULAR [None]
  - TOOTH LOSS [None]
  - WEIGHT DECREASED [None]
